FAERS Safety Report 11782691 (Version 4)
Quarter: 2016Q1

REPORT INFORMATION
  Report Type: Spontaneous
  Country: US (occurrence: US)
  Receive Date: 20151127
  Receipt Date: 20160104
  Transmission Date: 20160525
  Serious: Yes (Death, Hospitalization)
  Sender: FDA-Public Use
  Company Number: US-UNITED THERAPEUTICS-UNT-2015-014558

PATIENT
  Age: 65 Year
  Sex: Male
  Weight: 110.88 kg

DRUGS (3)
  1. TYVASO [Suspect]
     Active Substance: TREPROSTINIL
     Indication: PULMONARY HYPERTENSION
     Dosage: 18-54 ?G, QID
  2. REVATIO [Concomitant]
     Active Substance: SILDENAFIL CITRATE
     Indication: PRODUCT USED FOR UNKNOWN INDICATION
  3. TYVASO [Suspect]
     Active Substance: TREPROSTINIL
     Indication: PULMONARY ARTERIAL HYPERTENSION
     Dosage: 18-54 ?G, QID
     Dates: start: 20151109

REACTIONS (6)
  - Atrial fibrillation [Unknown]
  - Sinusitis [Unknown]
  - Bradycardia [Unknown]
  - Hypotension [Unknown]
  - Death [Fatal]
  - Tachycardia [Unknown]

NARRATIVE: CASE EVENT DATE: 201511
